FAERS Safety Report 8534013-5 (Version None)
Quarter: 2012Q3

REPORT INFORMATION
  Report Type: 
  Country: None (occurrence: None)
  Receive Date: 20120724
  Receipt Date: 20120709
  Transmission Date: 20120928
  Serious: Yes (Other)
  Sender: FDA-Public Use
  Company Number: PT-ARROW-2012-12224

PATIENT
  Age: 37 Year
  Sex: Female

DRUGS (3)
  1. RISPERIDONE [Suspect]
     Indication: BIPOLAR I DISORDER
     Dosage: 3 MG, DAILY
     Route: 065
  2. VALPROATE SODIUM [Suspect]
     Indication: BIPOLAR I DISORDER
     Dosage: 250 MG, BID
     Route: 065
  3. VALPROATE SODIUM [Suspect]
     Dosage: 500 MG, BID
     Route: 065

REACTIONS (4)
  - POTENTIATING DRUG INTERACTION [None]
  - INSOMNIA [None]
  - HYPERAMMONAEMIC ENCEPHALOPATHY [None]
  - AKATHISIA [None]
